FAERS Safety Report 15160499 (Version 4)
Quarter: 2018Q3

REPORT INFORMATION
  Report Type: Report from Study
  Country: US (occurrence: US)
  Receive Date: 20180718
  Receipt Date: 20180921
  Transmission Date: 20181010
  Serious: Yes (Hospitalization, Other)
  Sender: FDA-Public Use
  Company Number: US-GILEAD-2018-0350504

PATIENT
  Age: 40 Year
  Sex: Female
  Weight: 75.28 kg

DRUGS (24)
  1. ATIVAN [Concomitant]
     Active Substance: LORAZEPAM
  2. ALDACTONE [Concomitant]
     Active Substance: SPIRONOLACTONE
  3. BUMEX [Concomitant]
     Active Substance: BUMETANIDE
  4. KLOR?CON [Concomitant]
     Active Substance: POTASSIUM CHLORIDE
  5. TRAMADOL. [Concomitant]
     Active Substance: TRAMADOL
  6. HYDROCODONE/ACETAMINOPHEN [Concomitant]
     Active Substance: ACETAMINOPHEN\HYDROCODONE
  7. SENNOSIDE                          /00571901/ [Concomitant]
     Active Substance: SENNOSIDES A AND B
  8. VELETRI [Suspect]
     Active Substance: EPOPROSTENOL
     Indication: PRODUCT USED FOR UNKNOWN INDICATION
     Dosage: 19 NG, UNK
     Route: 065
  9. MORPHINE [Concomitant]
     Active Substance: MORPHINE
  10. ONDANSETRON [Concomitant]
     Active Substance: ONDANSETRON
  11. REVATIO [Concomitant]
     Active Substance: SILDENAFIL CITRATE
  12. TYLENOL EXTRA STRENGTH [Concomitant]
     Active Substance: ACETAMINOPHEN
  13. VASOSTRICT [Concomitant]
     Active Substance: VASOPRESSIN
  14. AMIODARONE [Concomitant]
     Active Substance: AMIODARONE
  15. AMBRISENTAN [Suspect]
     Active Substance: AMBRISENTAN
     Indication: PULMONARY HYPERTENSION
     Dosage: 10 MG, QD
     Route: 065
     Dates: start: 20110722, end: 20180823
  16. DIURIL                             /00011801/ [Concomitant]
  17. TOPROL XL [Concomitant]
     Active Substance: METOPROLOL SUCCINATE
  18. NORCO [Concomitant]
     Active Substance: ACETAMINOPHEN\HYDROCODONE BITARTRATE
  19. DOPAMINE [Concomitant]
     Active Substance: DOPAMINE\DOPAMINE HYDROCHLORIDE
  20. COUMADIN [Concomitant]
     Active Substance: WARFARIN SODIUM
  21. MAGNESIUM [Concomitant]
     Active Substance: MAGNESIUM
  22. AMBRISENTAN [Suspect]
     Active Substance: AMBRISENTAN
     Indication: DRUG ABUSE
  23. LEVOTHYROXINE. [Concomitant]
     Active Substance: LEVOTHYROXINE
  24. METOLAZONE. [Concomitant]
     Active Substance: METOLAZONE

REACTIONS (3)
  - Pulmonary arterial hypertension [Unknown]
  - Cardiac failure [Unknown]
  - Renal impairment [Unknown]

NARRATIVE: CASE EVENT DATE: 20180713
